FAERS Safety Report 24660302 (Version 11)
Quarter: 2025Q3

REPORT INFORMATION
  Report Type: Spontaneous
  Country: IL (occurrence: IL)
  Receive Date: 20241125
  Receipt Date: 20250910
  Transmission Date: 20251021
  Serious: Yes (Life-Threatening, Hospitalization, Other)
  Sender: PFIZER
  Company Number: IL-PFIZER INC-202400308769

PATIENT
  Age: 84 Year
  Sex: Male
  Weight: 75 kg

DRUGS (61)
  1. ELELYSO [Suspect]
     Active Substance: TALIGLUCERASE ALFA
     Indication: Gaucher^s disease
     Route: 042
     Dates: start: 201901
  2. ELELYSO [Suspect]
     Active Substance: TALIGLUCERASE ALFA
     Route: 042
  3. ELELYSO [Suspect]
     Active Substance: TALIGLUCERASE ALFA
     Route: 042
  4. ELELYSO [Suspect]
     Active Substance: TALIGLUCERASE ALFA
     Route: 042
  5. ELELYSO [Suspect]
     Active Substance: TALIGLUCERASE ALFA
     Route: 042
     Dates: start: 20190205
  6. ELELYSO [Suspect]
     Active Substance: TALIGLUCERASE ALFA
     Route: 042
     Dates: start: 20190303, end: 20190303
  7. ELELYSO [Suspect]
     Active Substance: TALIGLUCERASE ALFA
     Dates: start: 20200416
  8. ELELYSO [Suspect]
     Active Substance: TALIGLUCERASE ALFA
     Dates: start: 20200427
  9. ELELYSO [Suspect]
     Active Substance: TALIGLUCERASE ALFA
     Dates: start: 20200511
  10. ELELYSO [Suspect]
     Active Substance: TALIGLUCERASE ALFA
     Dates: start: 20200524
  11. ELELYSO [Suspect]
     Active Substance: TALIGLUCERASE ALFA
     Dates: start: 20200618
  12. ELELYSO [Suspect]
     Active Substance: TALIGLUCERASE ALFA
     Dates: start: 20190327
  13. ELELYSO [Suspect]
     Active Substance: TALIGLUCERASE ALFA
     Dates: start: 20190411
  14. ELELYSO [Suspect]
     Active Substance: TALIGLUCERASE ALFA
     Dates: start: 20190430
  15. ELELYSO [Suspect]
     Active Substance: TALIGLUCERASE ALFA
     Dates: start: 20190516
  16. ELELYSO [Suspect]
     Active Substance: TALIGLUCERASE ALFA
     Dates: start: 20190612
  17. ELELYSO [Suspect]
     Active Substance: TALIGLUCERASE ALFA
     Dates: start: 20190623
  18. ELELYSO [Suspect]
     Active Substance: TALIGLUCERASE ALFA
     Dates: start: 20190710
  19. ELELYSO [Suspect]
     Active Substance: TALIGLUCERASE ALFA
     Dates: start: 20190723
  20. ELELYSO [Suspect]
     Active Substance: TALIGLUCERASE ALFA
     Dates: start: 20190806
  21. ELELYSO [Suspect]
     Active Substance: TALIGLUCERASE ALFA
     Dates: start: 20190820
  22. ELELYSO [Suspect]
     Active Substance: TALIGLUCERASE ALFA
     Dates: start: 20190904
  23. ELELYSO [Suspect]
     Active Substance: TALIGLUCERASE ALFA
     Dates: start: 20191003
  24. ELELYSO [Suspect]
     Active Substance: TALIGLUCERASE ALFA
     Dates: start: 20191023
  25. ELELYSO [Suspect]
     Active Substance: TALIGLUCERASE ALFA
     Dates: start: 20191114
  26. ELELYSO [Suspect]
     Active Substance: TALIGLUCERASE ALFA
     Route: 042
  27. ELELYSO [Suspect]
     Active Substance: TALIGLUCERASE ALFA
     Route: 042
  28. ELELYSO [Suspect]
     Active Substance: TALIGLUCERASE ALFA
     Dates: start: 20211222
  29. ELELYSO [Suspect]
     Active Substance: TALIGLUCERASE ALFA
     Route: 042
  30. ELELYSO [Suspect]
     Active Substance: TALIGLUCERASE ALFA
     Route: 042
  31. ELELYSO [Suspect]
     Active Substance: TALIGLUCERASE ALFA
     Route: 042
  32. ELELYSO [Suspect]
     Active Substance: TALIGLUCERASE ALFA
     Route: 042
  33. ELELYSO [Suspect]
     Active Substance: TALIGLUCERASE ALFA
     Route: 042
  34. ELELYSO [Suspect]
     Active Substance: TALIGLUCERASE ALFA
     Route: 042
  35. ELELYSO [Suspect]
     Active Substance: TALIGLUCERASE ALFA
     Route: 042
  36. ELELYSO [Suspect]
     Active Substance: TALIGLUCERASE ALFA
     Route: 042
     Dates: start: 20230424, end: 20230424
  37. ELELYSO [Suspect]
     Active Substance: TALIGLUCERASE ALFA
     Route: 042
  38. ELELYSO [Suspect]
     Active Substance: TALIGLUCERASE ALFA
     Route: 042
     Dates: start: 20230628, end: 20230628
  39. ELELYSO [Suspect]
     Active Substance: TALIGLUCERASE ALFA
     Route: 042
     Dates: start: 20230822, end: 20230822
  40. ELELYSO [Suspect]
     Active Substance: TALIGLUCERASE ALFA
     Route: 042
     Dates: start: 20230910, end: 20230910
  41. ELELYSO [Suspect]
     Active Substance: TALIGLUCERASE ALFA
     Route: 042
  42. ELELYSO [Suspect]
     Active Substance: TALIGLUCERASE ALFA
     Route: 042
     Dates: start: 20231017, end: 20231017
  43. ELELYSO [Suspect]
     Active Substance: TALIGLUCERASE ALFA
     Route: 042
  44. ELELYSO [Suspect]
     Active Substance: TALIGLUCERASE ALFA
     Route: 042
     Dates: start: 20231108, end: 20231108
  45. ELELYSO [Suspect]
     Active Substance: TALIGLUCERASE ALFA
     Route: 042
     Dates: start: 20231205, end: 20231205
  46. ELELYSO [Suspect]
     Active Substance: TALIGLUCERASE ALFA
     Route: 042
  47. ELELYSO [Suspect]
     Active Substance: TALIGLUCERASE ALFA
     Route: 042
     Dates: start: 20240129, end: 20240129
  48. ELELYSO [Suspect]
     Active Substance: TALIGLUCERASE ALFA
     Route: 042
     Dates: start: 20240225, end: 20240225
  49. ELELYSO [Suspect]
     Active Substance: TALIGLUCERASE ALFA
     Route: 042
     Dates: start: 20240311, end: 20240311
  50. ELELYSO [Suspect]
     Active Substance: TALIGLUCERASE ALFA
     Route: 042
     Dates: start: 20240506
  51. FUROSEMIDE [Concomitant]
     Active Substance: FUROSEMIDE
     Indication: Myocardial ischaemia
     Dosage: 40 MG, 1X/DAY
  52. SPIRONOLACTONE [Concomitant]
     Active Substance: SPIRONOLACTONE
     Indication: Myocardial ischaemia
     Dosage: 12.5 MG, 1X/DAY
  53. VILDAGLIPTIN [Concomitant]
     Active Substance: VILDAGLIPTIN
     Indication: Myocardial ischaemia
     Dosage: 50 MG, 1X/DAY
  54. BISOPROLOL [Concomitant]
     Active Substance: BISOPROLOL
     Indication: Myocardial ischaemia
     Dosage: 1.25 MG, 1X/DAY
  55. REPAGLINIDE [Concomitant]
     Active Substance: REPAGLINIDE
     Indication: Myocardial ischaemia
     Dosage: 1 MG, 3X/DAY
  56. VANCOMYCIN [Concomitant]
     Active Substance: VANCOMYCIN
     Indication: Infection
     Dosage: 500 MG, 2X/DAY
     Route: 042
     Dates: start: 20200618
  57. LERCANIDIPINE [Concomitant]
     Active Substance: LERCANIDIPINE
     Indication: Blood pressure increased
     Dosage: 10 MG, 2X/DAY
     Route: 048
     Dates: start: 20200618
  58. INSULIN GLULISINE [Concomitant]
     Active Substance: INSULIN GLULISINE
     Dosage: 8 IU, 3X/DAY
     Route: 058
     Dates: start: 20200618
  59. INSULIN GLULISINE [Concomitant]
     Active Substance: INSULIN GLULISINE
     Dosage: 18 IU, 1X/DAY
     Route: 058
     Dates: start: 20200618
  60. DUTASTERIDE [Concomitant]
     Active Substance: DUTASTERIDE
     Indication: Urinary retention
     Dosage: 0.5 MG, 1X/DAY
     Dates: start: 20200618
  61. ERYTHROPOIETIN [Concomitant]
     Active Substance: ERYTHROPOIETIN
     Dosage: ONCE WEEKLY

REACTIONS (46)
  - Endocarditis bacterial [Recovering/Resolving]
  - Loss of consciousness [Recovering/Resolving]
  - Hypertension [Unknown]
  - Pyrexia [Unknown]
  - Urinary tract infection [Unknown]
  - Sepsis [Unknown]
  - Haemoglobin decreased [Unknown]
  - Cerebrovascular accident [Unknown]
  - Chest injury [Unknown]
  - Bronchitis [Unknown]
  - Pulmonary hypertension [Unknown]
  - Arrhythmia [Recovered/Resolved]
  - Atrial fibrillation [Recovered/Resolved]
  - Anaemia [Not Recovered/Not Resolved]
  - Bradycardia [Recovered/Resolved]
  - Pneumonia [Unknown]
  - Blood potassium increased [Recovered/Resolved]
  - Heart rate irregular [Unknown]
  - Heart rate decreased [Unknown]
  - Blood pressure fluctuation [Unknown]
  - Weight decreased [Unknown]
  - Cough [Unknown]
  - Faeces discoloured [Unknown]
  - Infusion site pain [Recovered/Resolved]
  - Back pain [Recovered/Resolved]
  - Administration site swelling [Unknown]
  - Arthralgia [Unknown]
  - Haematoma [Unknown]
  - Osteoporosis [Unknown]
  - Fall [Unknown]
  - Musculoskeletal chest pain [Unknown]
  - Contusion [Unknown]
  - Productive cough [Recovering/Resolving]
  - Asthenia [Unknown]
  - Swelling face [Recovering/Resolving]
  - Cyanosis [Recovering/Resolving]
  - Eye disorder [Unknown]
  - Face injury [Unknown]
  - Oedema peripheral [Recovering/Resolving]
  - Speech disorder [Unknown]
  - Malaise [Unknown]
  - Decubitus ulcer [Recovering/Resolving]
  - COVID-19 [Recovered/Resolved]
  - Inappropriate schedule of product administration [Unknown]
  - Drug monitoring procedure not performed [Unknown]
  - Intentional product misuse [Unknown]

NARRATIVE: CASE EVENT DATE: 20190101
